FAERS Safety Report 13987423 (Version 3)
Quarter: 2018Q1

REPORT INFORMATION
  Report Type: Spontaneous
  Country: DE (occurrence: DE)
  Receive Date: 20170919
  Receipt Date: 20180207
  Transmission Date: 20180508
  Serious: Yes (Other)
  Sender: FDA-Public Use
  Company Number: DE-TEVA-802905GER

PATIENT
  Age: 60 Year
  Sex: Male
  Weight: 80 kg

DRUGS (11)
  1. VALSARTAN. [Concomitant]
     Active Substance: VALSARTAN
     Dosage: 40 MILLIGRAM DAILY; 1-0-0
  2. HCT [Concomitant]
     Active Substance: HYDROCHLOROTHIAZIDE
     Dosage: 25 MILLIGRAM DAILY; 1-0-0
  3. HEPARIN-NATRIUM-25 000-RATIOPHARM [Suspect]
     Active Substance: HEPARIN SODIUM
     Dosage: 55000 IU (INTERNATIONAL UNIT) DAILY; 45000 I.U. HEPARIN AND 10000 I.U. HEPARIN IN HEART-LUNG MACHINE
     Route: 065
     Dates: start: 20170831, end: 20170831
  4. CLEXANE [Concomitant]
     Active Substance: ENOXAPARIN SODIUM
     Dosage: .4 ML DAILY; 0-0-1
  5. TRANEXAMIC ACID. [Suspect]
     Active Substance: TRANEXAMIC ACID
     Route: 065
  6. ASPIRIN. [Concomitant]
     Active Substance: ASPIRIN
     Dosage: 100 MILLIGRAM DAILY; 0-1-0
  7. MAGNESIUM VERLA [Concomitant]
     Active Substance: MAGNESIUM
     Dosage: 1-0-0
  8. AMIODARON [Concomitant]
     Active Substance: AMIODARONE
     Dosage: 200 MILLIGRAM DAILY; 1-0-0
  9. EPLERENON [Concomitant]
     Active Substance: EPLERENONE
     Dosage: 25 MILLIGRAM DAILY; 1-0-0
  10. BISOPROLOL [Concomitant]
     Active Substance: BISOPROLOL
     Dosage: 7.5 MILLIGRAM DAILY; 1-0-2
  11. ATORVASTATIN [Concomitant]
     Active Substance: ATORVASTATIN
     Dosage: 40 MILLIGRAM DAILY; 0-0-1

REACTIONS (4)
  - Vasodilatation [Recovered/Resolved]
  - Haemoglobin increased [Recovered/Resolved]
  - Blood creatinine increased [Unknown]
  - Renal failure [Unknown]

NARRATIVE: CASE EVENT DATE: 20170831
